FAERS Safety Report 19159660 (Version 2)
Quarter: 2021Q2

REPORT INFORMATION
  Report Type: Spontaneous
  Country: JP (occurrence: JP)
  Receive Date: 20210420
  Receipt Date: 20210622
  Transmission Date: 20210717
  Serious: Yes (Hospitalization, Other)
  Sender: FDA-Public Use
  Company Number: JP-PFIZER INC-2021383935

PATIENT
  Age: 70 Year
  Sex: Male
  Weight: 48.5 kg

DRUGS (19)
  1. ELIQUIS [Concomitant]
     Active Substance: APIXABAN
     Dosage: 2.5 MG, 2X/DAY
  2. CAMOSTAT MESILATE [Concomitant]
     Active Substance: CAMOSTAT MESYLATE
     Dosage: 100 MG, 3X/DAY
     Dates: end: 20210125
  3. MECOBALAMIN TOWA [Concomitant]
     Active Substance: METHYLCOBALAMIN
     Dosage: 0.5 MG, 3X/DAY
     Dates: end: 20210128
  4. LUNESTA [Concomitant]
     Active Substance: ESZOPICLONE
     Dosage: 2 MG, 1X/DAY
     Dates: start: 20210108, end: 20210119
  5. METHYCOBAL [Concomitant]
     Active Substance: METHYLCOBALAMIN
     Dosage: 500 UG, 3X/DAY
     Dates: start: 20210129
  6. TRAZODONE [Concomitant]
     Active Substance: TRAZODONE HYDROCHLORIDE
     Dosage: 25 MG, 1X/DAY
     Dates: start: 20201102, end: 20210103
  7. SPIRONOLACTONE. [Concomitant]
     Active Substance: SPIRONOLACTONE
     Dosage: 25 MG, 1X/DAY
     Dates: start: 20201107, end: 20210128
  8. DROXIDOPA [Concomitant]
     Active Substance: DROXIDOPA
     Dosage: 200 MG, 2X/DAY
     Dates: start: 20201126, end: 20210128
  9. SILODOSIN OD [Concomitant]
     Dosage: 4 MG, 2X/DAY
     Dates: start: 20201223, end: 20210128
  10. RISPERIDONE. [Suspect]
     Active Substance: RISPERIDONE
     Indication: DELIRIUM
     Dosage: 1 MG, ONCE A DAY
     Route: 048
     Dates: start: 20210120, end: 20210126
  11. BISONO [Concomitant]
     Active Substance: BISOPROLOL
     Dosage: 2 MG, DAILY
     Dates: start: 20200823, end: 20210128
  12. VFEND [Suspect]
     Active Substance: VORICONAZOLE
     Indication: BRONCHOPULMONARY ASPERGILLOSIS
     Dosage: 200 MG, TWICE A DAY
     Route: 048
     Dates: start: 20201028, end: 20210128
  13. AMITIZA [Concomitant]
     Active Substance: LUBIPROSTONE
     Dosage: 24 UG, 2X/DAY
     Dates: start: 20210123, end: 20210128
  14. E KEPPRA [Concomitant]
     Active Substance: LEVETIRACETAM
     Dosage: 500 MG, 2X/DAY
     Dates: start: 20180212
  15. AMBROXOL HCL [Concomitant]
     Active Substance: AMBROXOL HYDROCHLORIDE
     Dosage: 15 MG, 3X/DAY
     Dates: start: 20200930, end: 20210125
  16. MIYA?BM [Concomitant]
     Active Substance: CLOSTRIDIUM BUTYRICUM SPORES STRAIN M-55
     Dosage: 2 DF, 3X/DAY
     Dates: start: 20200925
  17. ROZEREM [Concomitant]
     Active Substance: RAMELTEON
     Dosage: 8 MG, 1X/DAY
     Dates: start: 20201107
  18. MIDODRINE HYDROCHLORIDE. [Concomitant]
     Active Substance: MIDODRINE HYDROCHLORIDE
     Dosage: 4 MG, 2X/DAY
     Dates: start: 20201114, end: 20210128
  19. GRAMALIL [Concomitant]
     Active Substance: TIAPRIDE HYDROCHLORIDE
     Dosage: 25 MG, 1X/DAY OR DOSE INCREASED AS NEEDED
     Dates: start: 20210104, end: 20210119

REACTIONS (6)
  - Cardiac failure acute [Unknown]
  - Altered state of consciousness [Unknown]
  - Hypotension [Unknown]
  - Adrenal insufficiency [Unknown]
  - Hypoglycaemia [Recovered/Resolved]
  - Hepatic function abnormal [Unknown]

NARRATIVE: CASE EVENT DATE: 20210115
